FAERS Safety Report 4389968-X (Version None)
Quarter: 2004Q2

REPORT INFORMATION
  Report Type: 
  Country: None (occurrence: None)
  Receive Date: 20040630
  Receipt Date: 20040617
  Transmission Date: 20050107
  Serious: No
  Sender: FDA-Public Use
  Company Number: 2004SE03422

PATIENT
  Age: 49 Year
  Sex: Female
  Weight: 82 kg

DRUGS (1)
  1. NEXIUM [Suspect]
     Dosage: 40 MG; PO
     Route: 048
     Dates: start: 20040405, end: 20040501

REACTIONS (2)
  - AGGRESSION [None]
  - AGITATION [None]
